FAERS Safety Report 4557475-7 (Version None)
Quarter: 2005Q1

REPORT INFORMATION
  Report Type: 
  Country: None (occurrence: None)
  Receive Date: 20050103
  Receipt Date: 20040910
  Transmission Date: 20050727
  Serious: Yes (Other)
  Sender: FDA-Public Use
  Company Number: 2004UW19193

PATIENT
  Age: 71 Year
  Sex: Female
  Weight: 89.8122 kg

DRUGS (11)
  1. CRESTOR [Suspect]
     Indication: BLOOD CHOLESTEROL INCREASED
     Dosage: 10 MG DAILY PO
     Route: 048
  2. ZETIA [Concomitant]
  3. LASIX [Concomitant]
  4. ACCUPRIL [Concomitant]
  5. BENICAR [Concomitant]
  6. POTASSIUM CHLORIDE [Concomitant]
  7. PREVACID [Concomitant]
  8. NORVASC [Concomitant]
  9. ASPIRIN [Concomitant]
  10. TOPROL-XL [Concomitant]
  11. IMDUR [Concomitant]

REACTIONS (4)
  - BLOOD PRESSURE INCREASED [None]
  - FEELING ABNORMAL [None]
  - HEADACHE [None]
  - VISION BLURRED [None]
